FAERS Safety Report 6214470-X (Version None)
Quarter: 2009Q2

REPORT INFORMATION
  Report Type: 
  Country: None (occurrence: None)
  Receive Date: 20090604
  Receipt Date: 20090529
  Transmission Date: 20091009
  Serious: Yes (Other)
  Sender: FDA-Public Use
  Company Number: NZ-ALLERGAN-0903840US

PATIENT
  Age: 37 Year
  Sex: Female

DRUGS (2)
  1. BOTOX [Suspect]
     Indication: SKIN WRINKLING
     Dosage: 6 UNITS, SINGLE
     Route: 030
  2. BOTOX [Suspect]
     Dosage: 20 UNITS, SINGLE
     Route: 030

REACTIONS (8)
  - HYPERSENSITIVITY [None]
  - INCORRECT STORAGE OF DRUG [None]
  - INJECTION SITE ERYTHEMA [None]
  - INJECTION SITE PAIN [None]
  - INJECTION SITE SWELLING [None]
  - INJECTION SITE WARMTH [None]
  - PRODUCT CONTAMINATION MICROBIAL [None]
  - WRONG TECHNIQUE IN DRUG USAGE PROCESS [None]
